FAERS Safety Report 18381707 (Version 7)
Quarter: 2024Q1

REPORT INFORMATION
  Report Type: Spontaneous
  Country: US (occurrence: US)
  Receive Date: 20201014
  Receipt Date: 20240301
  Transmission Date: 20240410
  Serious: Yes (Hospitalization, Other)
  Sender: FDA-Public Use
  Company Number: US-PFIZER INC-2020396139

PATIENT
  Age: 64 Year
  Sex: Female
  Weight: 45.81 kg

DRUGS (3)
  1. XELJANZ [Suspect]
     Active Substance: TOFACITINIB CITRATE
     Indication: Colitis
     Dosage: 10 MG, 2X/DAY [60 TABLETS]
     Route: 048
  2. XELJANZ [Suspect]
     Active Substance: TOFACITINIB CITRATE
     Indication: Colitis ulcerative
     Dosage: 5 MG, 2X/DAY
     Route: 048
  3. PREDNISONE [Concomitant]
     Active Substance: PREDNISONE
     Indication: Colitis
     Dosage: 15 MG, DAILY [15MG BY MOUTH EACH DAY]
     Route: 048
     Dates: start: 202008

REACTIONS (2)
  - Condition aggravated [Unknown]
  - Pain [Unknown]
